FAERS Safety Report 21512659 (Version 2)
Quarter: 2022Q4

REPORT INFORMATION
  Report Type: Spontaneous
  Country: US (occurrence: US)
  Receive Date: 20221027
  Receipt Date: 20221118
  Transmission Date: 20230113
  Serious: No
  Sender: FDA-Public Use
  Company Number: US-MICRO LABS LIMITED-ML2022-04461

PATIENT
  Age: 66 Year
  Sex: Male
  Weight: 103.4 kg

DRUGS (2)
  1. KETOROLAC TROMETHAMINE [Suspect]
     Active Substance: KETOROLAC TROMETHAMINE
     Dosage: ONE DROP IN BOTH EYES, 4 TIMES DAILY
     Route: 047
     Dates: start: 202203, end: 2022
  2. KETOROLAC TROMETHAMINE [Suspect]
     Active Substance: KETOROLAC TROMETHAMINE
     Dosage: ONE DROP IN BOTH EYES, 4 TIMES DAILY
     Route: 047
     Dates: start: 20220825, end: 20220829

REACTIONS (4)
  - Eye pain [Unknown]
  - Eye irritation [Unknown]
  - Product packaging quantity issue [Unknown]
  - Suspected product quality issue [Unknown]

NARRATIVE: CASE EVENT DATE: 20220825
